FAERS Safety Report 12855682 (Version 5)
Quarter: 2017Q1

REPORT INFORMATION
  Report Type: Spontaneous
  Country: ES (occurrence: ES)
  Receive Date: 20161017
  Receipt Date: 20170127
  Transmission Date: 20170428
  Serious: Yes (Death, Other)
  Sender: FDA-Public Use
  Company Number: ES-ROCHE-1838998

PATIENT
  Age: 67 Year
  Sex: Female
  Weight: 63.5 kg

DRUGS (8)
  1. CELLCEPT [Suspect]
     Active Substance: MYCOPHENOLATE MOFETIL\MYCOPHENOLATE MOFETIL HYDROCHLORIDE
     Indication: APLASIA PURE RED CELL
     Route: 048
     Dates: start: 20160623
  2. EPOETIN BETA [Concomitant]
     Active Substance: ERYTHROPOIETIN
     Indication: ANAEMIA
     Dosage: 30.000UI
     Route: 058
     Dates: start: 201512
  3. MABTHERA [Suspect]
     Active Substance: RITUXIMAB
     Indication: APLASIA PURE RED CELL
  4. MABTHERA [Suspect]
     Active Substance: RITUXIMAB
     Indication: CHRONIC LYMPHOCYTIC LEUKAEMIA
     Route: 042
     Dates: start: 20160404, end: 20160428
  5. CELLCEPT [Suspect]
     Active Substance: MYCOPHENOLATE MOFETIL\MYCOPHENOLATE MOFETIL HYDROCHLORIDE
     Route: 048
     Dates: end: 20160902
  6. PREDNISONE. [Concomitant]
     Active Substance: PREDNISONE
     Indication: CHRONIC LYMPHOCYTIC LEUKAEMIA
  7. VALCYTE [Suspect]
     Active Substance: VALGANCICLOVIR HYDROCHLORIDE
     Indication: CYTOMEGALOVIRUS INFECTION
     Route: 065
     Dates: start: 20160728, end: 20160828
  8. PREDNISONE. [Concomitant]
     Active Substance: PREDNISONE
     Indication: APLASIA PURE RED CELL
     Route: 048
     Dates: start: 201508

REACTIONS (8)
  - Therapy non-responder [Not Recovered/Not Resolved]
  - Immunosuppressant drug level increased [Unknown]
  - Thrombocytopenia [Recovered/Resolved]
  - Neutropenia [Recovered/Resolved]
  - Septic shock [Fatal]
  - Off label use [Unknown]
  - Campylobacter infection [Recovered/Resolved]
  - Cytomegalovirus infection [Recovered/Resolved]

NARRATIVE: CASE EVENT DATE: 20160428
